FAERS Safety Report 18493313 (Version 4)
Quarter: 2021Q3

REPORT INFORMATION
  Report Type: Report from Study
  Country: US (occurrence: US)
  Receive Date: 20201111
  Receipt Date: 20210827
  Transmission Date: 20211014
  Serious: Yes (Life-Threatening, Hospitalization, Other)
  Sender: FDA-Public Use
  Company Number: US-TAKEDA-US202033284

PATIENT
  Age: 44 Year
  Sex: Male
  Weight: 62 kg

DRUGS (24)
  1. TEDUGLUTIDE [Suspect]
     Active Substance: TEDUGLUTIDE
     Indication: SHORT-BOWEL SYNDROME
     Dosage: 3 MILLIGRAM (DAILY DOSE 0.05 MG/KG), OTHER (TED DOSES PER WEEK 7)
     Route: 065
     Dates: start: 20181120, end: 20190219
  2. TEDUGLUTIDE [Suspect]
     Active Substance: TEDUGLUTIDE
     Dosage: 0.30 MILLIGRAM, QD
     Route: 058
     Dates: start: 20181120, end: 20190211
  3. TEDUGLUTIDE [Suspect]
     Active Substance: TEDUGLUTIDE
     Dosage: 3 MILLIGRAM (DAILY DOSE 0.05 MG/KG), OTHER (TED DOSES PER WEEK 12)
     Route: 065
     Dates: start: 20190411
  4. VITAMIN E [HERBAL OIL NOS] [Concomitant]
     Indication: HYPOVITAMINOSIS
     Dosage: 400 UNITS, QD
     Route: 048
     Dates: start: 20120627
  5. TEDUGLUTIDE [Suspect]
     Active Substance: TEDUGLUTIDE
     Dosage: 0.30 MILLIGRAM, QD
     Route: 058
     Dates: start: 20181120, end: 20190211
  6. TEDUGLUTIDE [Suspect]
     Active Substance: TEDUGLUTIDE
     Dosage: 5 MILLIGRAM, QD
     Route: 058
     Dates: start: 20190219
  7. TEDUGLUTIDE [Suspect]
     Active Substance: TEDUGLUTIDE
     Dosage: 1.5 MILLIGRAM (DAILY DOSE 0.05 MG/KG), OTHER (TED DOSES PER WEEK 7)
     Route: 065
     Dates: start: 20190221, end: 20190411
  8. TEDUGLUTIDE [Suspect]
     Active Substance: TEDUGLUTIDE
     Indication: SHORT-BOWEL SYNDROME
     Dosage: 3 MILLIGRAM (DAILY DOSE 0.05 MG/KG), OTHER (TED DOSES PER WEEK 7)
     Route: 065
     Dates: start: 20181120, end: 20190219
  9. TEDUGLUTIDE [Suspect]
     Active Substance: TEDUGLUTIDE
     Dosage: 5 MILLIGRAM, QD
     Route: 058
     Dates: start: 20190219
  10. TEDUGLUTIDE [Suspect]
     Active Substance: TEDUGLUTIDE
     Dosage: 1.5 MILLIGRAM (DAILY DOSE 0.05 MG/KG), OTHER (TED DOSES PER WEEK 7)
     Route: 065
     Dates: start: 20190221, end: 20190411
  11. VITAMIN A [RETINOL] [Concomitant]
     Active Substance: RETINOL
     Indication: HYPOVITAMINOSIS
     Dosage: 1000 UNIT, QD
     Route: 048
     Dates: start: 20180627
  12. TEDUGLUTIDE [Suspect]
     Active Substance: TEDUGLUTIDE
     Indication: SHORT-BOWEL SYNDROME
     Dosage: 3 MILLIGRAM (DAILY DOSE 0.05 MG/KG), OTHER (TED DOSES PER WEEK 7)
     Route: 065
     Dates: start: 20181120, end: 20190219
  13. TEDUGLUTIDE [Suspect]
     Active Substance: TEDUGLUTIDE
     Dosage: 3 MILLIGRAM (DAILY DOSE 0.05 MG/KG), OTHER (TED DOSES PER WEEK 12)
     Route: 065
     Dates: start: 20190411
  14. TEDUGLUTIDE [Suspect]
     Active Substance: TEDUGLUTIDE
     Dosage: 5 MILLIGRAM, QD
     Route: 058
     Dates: start: 20190219
  15. TEDUGLUTIDE [Suspect]
     Active Substance: TEDUGLUTIDE
     Dosage: 5 MILLIGRAM, QD
     Route: 058
     Dates: start: 20190219
  16. TEDUGLUTIDE [Suspect]
     Active Substance: TEDUGLUTIDE
     Dosage: 1.5 MILLIGRAM (DAILY DOSE 0.05 MG/KG), OTHER (TED DOSES PER WEEK 7)
     Route: 065
     Dates: start: 20190221, end: 20190411
  17. TEDUGLUTIDE [Suspect]
     Active Substance: TEDUGLUTIDE
     Dosage: 3 MILLIGRAM (DAILY DOSE 0.05 MG/KG), OTHER (TED DOSES PER WEEK 12)
     Route: 065
     Dates: start: 20190411
  18. TEDUGLUTIDE [Suspect]
     Active Substance: TEDUGLUTIDE
     Dosage: 3 MILLIGRAM (DAILY DOSE 0.05 MG/KG), OTHER (TED DOSES PER WEEK 12)
     Route: 065
     Dates: start: 20190411
  19. ZOSYN [Concomitant]
     Active Substance: PIPERACILLIN SODIUM\TAZOBACTAM SODIUM
     Dosage: UNK
     Route: 065
  20. TEDUGLUTIDE [Suspect]
     Active Substance: TEDUGLUTIDE
     Dosage: 0.30 MILLIGRAM, QD
     Route: 058
     Dates: start: 20181120, end: 20190211
  21. TEDUGLUTIDE [Suspect]
     Active Substance: TEDUGLUTIDE
     Dosage: 1.5 MILLIGRAM (DAILY DOSE 0.05 MG/KG), OTHER (TED DOSES PER WEEK 7)
     Route: 065
     Dates: start: 20190221, end: 20190411
  22. TEDUGLUTIDE [Suspect]
     Active Substance: TEDUGLUTIDE
     Indication: SHORT-BOWEL SYNDROME
     Dosage: 3 MILLIGRAM (DAILY DOSE 0.05 MG/KG), OTHER (TED DOSES PER WEEK 7)
     Route: 065
     Dates: start: 20181120, end: 20190219
  23. TEDUGLUTIDE [Suspect]
     Active Substance: TEDUGLUTIDE
     Dosage: 0.30 MILLIGRAM, QD
     Route: 058
     Dates: start: 20181120, end: 20190211
  24. VIVONEX T.E.N. [Concomitant]
     Route: 065

REACTIONS (5)
  - Crohn^s disease [Recovered/Resolved]
  - Condition aggravated [Recovered/Resolved with Sequelae]
  - Cholecystitis acute [Recovered/Resolved]
  - COVID-19 [Recovered/Resolved]
  - Gallbladder rupture [Not Recovered/Not Resolved]

NARRATIVE: CASE EVENT DATE: 20200718
